FAERS Safety Report 15148205 (Version 2)
Quarter: 2018Q3

REPORT INFORMATION
  Report Type: Report from Study
  Country: US (occurrence: MX)
  Receive Date: 20180716
  Receipt Date: 20180720
  Transmission Date: 20181010
  Serious: No
  Sender: FDA-Public Use
  Company Number: US-SUNOVION-2018SUN002760

PATIENT
  Sex: Male

DRUGS (3)
  1. INDACATEROL AND GLYCOPYRROLATE [Suspect]
     Active Substance: GLYCOPYRROLATE\INDACATEROL MALEATE
     Indication: LUNG NEOPLASM MALIGNANT
     Dosage: 1 DF (GLYCOPYRRONIUM BROMIDE 50 MCG, INDACATEROL 110 MCG), QD;REGIMEN #1
     Route: 055
     Dates: start: 201805, end: 201806
  2. VANNAIR [Concomitant]
     Active Substance: BUDESONIDE\FORMOTEROL FUMARATE DIHYDRATE
     Indication: LUNG DISORDER
     Dosage: 4 DF, BID (2 IN THE MORNING AND 2 AT NIGHT)
     Route: 065
     Dates: start: 201805
  3. STIOLTO RESPIMAT [Concomitant]
     Active Substance: OLODATEROL HYDROCHLORIDE\TIOTROPIUM BROMIDE MONOHYDRATE
     Indication: LUNG DISORDER
     Dosage: 1 DF, QD
     Route: 065
     Dates: start: 201805

REACTIONS (2)
  - No adverse event [Unknown]
  - Product use in unapproved indication [None]
